FAERS Safety Report 7732857-0 (Version None)
Quarter: 2011Q3

REPORT INFORMATION
  Report Type: 
  Country: None (occurrence: None)
  Receive Date: 20110907
  Receipt Date: 20110830
  Transmission Date: 20111222
  Serious: Yes (Other)
  Sender: FDA-Public Use
  Company Number: PHHY2011ES78493

PATIENT
  Age: 45 Year
  Sex: Female

DRUGS (3)
  1. ISONIAZID [Suspect]
     Indication: CUTANEOUS TUBERCULOSIS
     Dosage: UNK
  2. PYRAZINAMIDE [Suspect]
     Indication: CUTANEOUS TUBERCULOSIS
     Dosage: UNK
  3. RIFAMPICIN [Suspect]
     Indication: CUTANEOUS TUBERCULOSIS

REACTIONS (2)
  - ULCER [None]
  - SUBCUTANEOUS NODULE [None]
